FAERS Safety Report 23175556 (Version 1)
Quarter: 2023Q4

REPORT INFORMATION
  Report Type: Spontaneous
  Country: US (occurrence: US)
  Receive Date: 20231113
  Receipt Date: 20231113
  Transmission Date: 20240109
  Serious: No
  Sender: FDA-Public Use
  Company Number: US-JNJFOC-20231046043

PATIENT

DRUGS (1)
  1. MENS ROGAINE EXTRA STRENGTH [Suspect]
     Active Substance: MINOXIDIL
     Indication: Product used for unknown indication
     Route: 065

REACTIONS (6)
  - Nasal pruritus [Unknown]
  - Application site rash [Unknown]
  - Nasal discomfort [Unknown]
  - Cough [Unknown]
  - Product contamination physical [Unknown]
  - Product odour abnormal [Unknown]
